FAERS Safety Report 5305702-0 (Version None)
Quarter: 2007Q2

REPORT INFORMATION
  Report Type: 
  Country: None (occurrence: None)
  Receive Date: 20070423
  Receipt Date: 20070423
  Transmission Date: 20071010
  Serious: Yes (Hospitalization)
  Sender: FDA-Public Use
  Company Number: None

PATIENT
  Age: 66 Year
  Sex: Male
  Weight: 88.4514 kg

DRUGS (2)
  1. ALLOPURINOL [Suspect]
     Dosage: 100 MG DAILY
  2. AZATHIOPRINE [Suspect]
     Dosage: 100MG QHS

REACTIONS (7)
  - BONE MARROW FAILURE [None]
  - DRUG INTERACTION [None]
  - DYSPNOEA [None]
  - FLUID RETENTION [None]
  - PANCYTOPENIA [None]
  - PYREXIA [None]
  - WEIGHT INCREASED [None]
